FAERS Safety Report 6671870-1 (Version None)
Quarter: 2010Q2

REPORT INFORMATION
  Report Type: 
  Country: None (occurrence: None)
  Receive Date: 20100407
  Receipt Date: 20100326
  Transmission Date: 20101027
  Serious: Yes (Other)
  Sender: FDA-Public Use
  Company Number: AU-PFIZER INC-2010039221

PATIENT
  Age: 33 Year
  Sex: Male

DRUGS (2)
  1. ZELDOX [Suspect]
     Dosage: 40 MG, 2X/DAY
     Dates: start: 20100318
  2. MIRTAZAPINE [Concomitant]

REACTIONS (1)
  - MUSCULAR WEAKNESS [None]
